FAERS Safety Report 9925997 (Version 1)
Quarter: 2014Q1

REPORT INFORMATION
  Report Type: Report from Study
  Country: CA (occurrence: CA)
  Receive Date: 20140226
  Receipt Date: 20140226
  Transmission Date: 20141002
  Serious: Yes (Hospitalization)
  Sender: FDA-Public Use
  Company Number: CA-BRISTOL-MYERS SQUIBB COMPANY-20278172

PATIENT
  Age: 63 Year
  Sex: Female
  Weight: 80 kg

DRUGS (19)
  1. BMS906024 [Suspect]
     Indication: MALIGNANT NEOPLASM OF UNKNOWN PRIMARY SITE
     Dosage: STOP ON:11FEB14
     Route: 042
     Dates: start: 20131230
  2. CARBOPLATIN [Suspect]
     Indication: MALIGNANT NEOPLASM OF UNKNOWN PRIMARY SITE
     Dosage: STOP ON:11FEB14
     Route: 042
     Dates: start: 20131203
  3. PACLITAXEL [Suspect]
     Indication: MALIGNANT NEOPLASM OF UNKNOWN PRIMARY SITE
     Dosage: STOP ON:11FEB14
     Route: 042
     Dates: start: 20131203
  4. RANITIDINE [Suspect]
     Dosage: 13JAN14?21JAN14?28JAN14
     Route: 042
     Dates: start: 20140113
  5. DEXAMETHASONE [Suspect]
     Route: 042
     Dates: start: 20140121, end: 20140121
  6. DIPHENHYDRAMINE [Suspect]
     Dosage: 21JAN14?28JAN14
     Route: 048
     Dates: start: 20140121
  7. LOPERAMIDE [Suspect]
     Route: 048
     Dates: start: 20140121, end: 20140121
  8. ONDANSETRON [Concomitant]
     Route: 048
     Dates: start: 20140121, end: 20140121
  9. ONDANSETRON [Concomitant]
     Route: 048
     Dates: start: 20140121, end: 20140121
  10. AMITRIPTYLINE [Concomitant]
     Dates: start: 200405
  11. CITALOPRAM [Concomitant]
     Dates: start: 200505
  12. LIPIDIL [Concomitant]
     Dates: start: 1998
  13. SYNTHROID [Concomitant]
     Dates: start: 200509
  14. PRAMIPEXOLE HCL [Concomitant]
     Dates: start: 201309
  15. QUETIAPINE [Concomitant]
     Dates: start: 201009
  16. ZOLMITRIPTAN [Concomitant]
     Dates: start: 2001
  17. DOCUSATE [Concomitant]
     Dates: start: 20030113
  18. TYLENOL #3 [Concomitant]
     Dates: start: 20130110
  19. MORPHINE [Concomitant]
     Dates: start: 20130116

REACTIONS (1)
  - Vomiting [Unknown]
